FAERS Safety Report 5065798-0 (Version None)
Quarter: 2006Q3

REPORT INFORMATION
  Report Type: 
  Country: None (occurrence: None)
  Receive Date: 20060731
  Receipt Date: 20060724
  Transmission Date: 20061208
  Serious: No
  Sender: FDA-Public Use
  Company Number: 2006UW14988

PATIENT
  Sex: Female

DRUGS (2)
  1. SEROQUEL [Suspect]
     Dosage: 600 - 800 MG DAILY
     Route: 048
  2. TOPAMAX [Concomitant]

REACTIONS (1)
  - NEUTROPENIA [None]
